FAERS Safety Report 12001133 (Version 1)
Quarter: 2016Q1

REPORT INFORMATION
  Report Type: Spontaneous
  Country: US (occurrence: US)
  Receive Date: 20160204
  Receipt Date: 20160204
  Transmission Date: 20160526
  Serious: Yes (Other)
  Sender: FDA-Public Use
  Company Number: US-ELI_LILLY_AND_COMPANY-US201409006389

PATIENT
  Sex: Female

DRUGS (4)
  1. CYMBALTA [Suspect]
     Active Substance: DULOXETINE HYDROCHLORIDE
     Indication: NEURALGIA
  2. CYMBALTA [Suspect]
     Active Substance: DULOXETINE HYDROCHLORIDE
     Indication: PAIN
     Dosage: UNK, UNKNOWN
     Route: 065
  3. CYMBALTA [Suspect]
     Active Substance: DULOXETINE HYDROCHLORIDE
     Indication: DEPRESSION
     Dosage: UNK, UNKNOWN
     Route: 065
  4. NEXIUM [Concomitant]
     Active Substance: ESOMEPRAZOLE MAGNESIUM
     Indication: PRODUCT USED FOR UNKNOWN INDICATION
     Dosage: UNK, UNKNOWN
     Route: 065

REACTIONS (13)
  - Nausea [Unknown]
  - Dysphagia [Recovered/Resolved]
  - Aphasia [Recovered/Resolved]
  - Mood swings [Unknown]
  - Dizziness [Unknown]
  - Sleep disorder [Unknown]
  - Insomnia [Unknown]
  - Nightmare [Unknown]
  - Drug withdrawal syndrome [Not Recovered/Not Resolved]
  - Vertigo [Unknown]
  - Pain in jaw [Recovered/Resolved]
  - Dyskinesia [Recovered/Resolved]
  - Paraesthesia [Unknown]
